FAERS Safety Report 8868125 (Version 1)
Quarter: 2012Q4

REPORT INFORMATION
  Report Type: 
  Country: US (occurrence: US)
  Receive Date: 20121025
  Receipt Date: 20121025
  Transmission Date: 20130627
  Serious: No
  Sender: FDA-Public Use
  Company Number: US-AMGEN-USASP2012019150

PATIENT
  Age: 53 Year
  Sex: Male
  Weight: 74.83 kg

DRUGS (11)
  1. ENBREL [Suspect]
     Indication: PRODUCT USED FOR UNKNOWN INDICATION
     Dosage: 50 mg, qwk
     Route: 058
  2. SIMVASTATIN [Concomitant]
     Dosage: 10 mg, UNK
  3. LISINOPRIL [Concomitant]
     Dosage: 10 mg, UNK
  4. CYMBALTA [Concomitant]
     Dosage: 20 mg, UNK
  5. ALPRAZOLAM [Concomitant]
     Dosage: 1 mg, UNK
  6. METHOTREXATE [Concomitant]
     Dosage: 2.5 mg, UNK
  7. AMOXICILLIN [Concomitant]
     Dosage: 500 mg, UNK
  8. CLARITHROMYCIN [Concomitant]
     Dosage: 500 mg, UNK
  9. LANSOPRAZOLE [Concomitant]
     Dosage: 30 mg, UNK
  10. VITAMIN B12                        /00056201/ [Concomitant]
  11. VITAMIN D /00107901/ [Concomitant]
     Dosage: 1000 IU, UNK

REACTIONS (2)
  - Gastroenteritis viral [Unknown]
  - Staphylococcal infection [Unknown]
